FAERS Safety Report 9222299 (Version 1)
Quarter: 2013Q1

REPORT INFORMATION
  Report Type: Spontaneous
  Country: US (occurrence: None)
  Receive Date: 20120910
  Receipt Date: 20120910
  Transmission Date: 20140127
  Serious: No
  Sender: FDA-Public Use
  Company Number: 1205USA02753

PATIENT
  Age: 82 Year
  Sex: Female

DRUGS (2)
  1. ZIOPTAN (TAFLUPOST) EYE DROPS, SOLUTION [Suspect]
     Indication: INTRAOCULAR PRESSURE TEST
     Dosage: 2 UNK, QD, OPHTHALMIC
     Route: 047
     Dates: start: 20120424
  2. SYNTHROID ( LEVOTHYROXINE SODIUM) [Concomitant]

REACTIONS (2)
  - Muscle spasms [None]
  - Pain in extremity [None]
